FAERS Safety Report 9190961 (Version 2)
Quarter: 2013Q2

REPORT INFORMATION
  Report Type: Report from Study
  Country: JP (occurrence: JP)
  Receive Date: 20130326
  Receipt Date: 20130430
  Transmission Date: 20140414
  Serious: Yes (Other)
  Sender: FDA-Public Use
  Company Number: JP-ROCHE-1206758

PATIENT
  Sex: Male

DRUGS (6)
  1. RANIBIZUMAB [Suspect]
     Indication: AGE-RELATED MACULAR DEGENERATION
     Route: 050
     Dates: start: 20090318
  2. RANIBIZUMAB [Suspect]
     Route: 050
     Dates: start: 20090415
  3. RANIBIZUMAB [Suspect]
     Route: 050
     Dates: start: 20090513
  4. BEVACIZUMAB [Suspect]
     Indication: AGE-RELATED MACULAR DEGENERATION
     Route: 065
  5. MOXIFLOXACIN HYDROCHLORIDE [Concomitant]
     Route: 065
     Dates: start: 200903, end: 200905
  6. CEFZON [Concomitant]
     Route: 065
     Dates: start: 20090318, end: 20090417

REACTIONS (1)
  - Retinal haemorrhage [Unknown]
